FAERS Safety Report 7635112-2 (Version None)
Quarter: 2011Q3

REPORT INFORMATION
  Report Type: 
  Country: None (occurrence: None)
  Receive Date: 20110726
  Receipt Date: 20110715
  Transmission Date: 20111222
  Serious: Yes (Hospitalization)
  Sender: FDA-Public Use
  Company Number: JP-SHIRE-SPV1-2011-00422

PATIENT
  Age: 62 Year
  Sex: Male

DRUGS (13)
  1. LANTHANUM CARBONATE [Suspect]
     Indication: HYPERPHOSPHATAEMIA
     Dosage: 750 MG, 1X/DAY:QD
     Route: 048
     Dates: start: 20090817, end: 20111012
  2. RENAGEL [Concomitant]
     Indication: HYPERPHOSPHATAEMIA
     Dosage: 2250 MG, UNKNOWN
     Route: 048
  3. OXAROL [Concomitant]
     Indication: PRODUCT USED FOR UNKNOWN INDICATION
     Dosage: 15 ?G, 1X/WEEK
     Route: 041
     Dates: start: 20090121
  4. PREDNISOLONE [Concomitant]
     Indication: PRODUCT USED FOR UNKNOWN INDICATION
     Dosage: 2.5 MG, UNKNOWN
     Route: 048
  5. DIOVAN [Concomitant]
     Indication: PRODUCT USED FOR UNKNOWN INDICATION
     Dosage: 80 MG, UNKNOWN
     Route: 048
  6. GASLON N [Concomitant]
     Indication: PRODUCT USED FOR UNKNOWN INDICATION
     Dosage: 4 MG, UNKNOWN
     Route: 048
  7. CINACALCET HYDROCHLORIDE [Concomitant]
     Indication: HYPERPARATHYROIDISM SECONDARY
     Dosage: 25 MG, UNKNOWN
     Route: 048
     Dates: start: 20080204
  8. PLETAL [Concomitant]
     Indication: PRODUCT USED FOR UNKNOWN INDICATION
     Dosage: 200 MG, UNKNOWN
     Route: 048
  9. LENDORMIN DAINIPPO [Concomitant]
     Indication: PRODUCT USED FOR UNKNOWN INDICATION
     Dosage: 0.25 MG, UNKNOWN
     Route: 048
  10. ALESION [Concomitant]
     Indication: PRODUCT USED FOR UNKNOWN INDICATION
     Dosage: 20 MG, UNKNOWN
     Route: 048
  11. LANTHANUM CARBONATE [Suspect]
     Dosage: 750 MG, 1X/DAY:QD
     Route: 048
     Dates: start: 20111111
  12. ATELEC [Concomitant]
     Indication: PRODUCT USED FOR UNKNOWN INDICATION
     Dosage: 20 MG, UNKNOWN
     Route: 048
  13. DEPAS [Concomitant]
     Indication: PRODUCT USED FOR UNKNOWN INDICATION
     Dosage: 1 MG, UNKNOWN
     Route: 048

REACTIONS (2)
  - GALLBLADDER PERFORATION [None]
  - CHOLELITHIASIS [None]
